FAERS Safety Report 5133506-0 (Version None)
Quarter: 2006Q4

REPORT INFORMATION
  Report Type: 
  Country: None (occurrence: None)
  Receive Date: 20061024
  Receipt Date: 20061010
  Transmission Date: 20070319
  Serious: Yes (Other)
  Sender: FDA-Public Use
  Company Number: 2006GB01828

PATIENT
  Sex: Female

DRUGS (2)
  1. SYMBICORT [Suspect]
     Dosage: 200/6
     Route: 055
  2. SYMBICORT [Suspect]
     Dosage: 400/12
     Route: 055

REACTIONS (3)
  - CHEST DISCOMFORT [None]
  - SWOLLEN TONGUE [None]
  - THROAT LESION [None]
